FAERS Safety Report 7555312-X (Version None)
Quarter: 2011Q2

REPORT INFORMATION
  Report Type: 
  Country: None (occurrence: None)
  Receive Date: 20110617
  Receipt Date: 20110606
  Transmission Date: 20111010
  Serious: Yes (Other)
  Sender: FDA-Public Use
  Company Number: PHHY2011US26092

PATIENT
  Sex: Male

DRUGS (8)
  1. NITROGLYCERIN [Concomitant]
     Indication: CORONARY ARTERY BYPASS
     Dosage: 0.4 MG, PRN
     Route: 048
  2. MULTI-VITAMINS [Concomitant]
     Indication: ROUTINE HEALTH MAINTENANCE
     Dosage: UNK
     Route: 048
  3. ASPIRIN [Concomitant]
     Indication: CORONARY ARTERY BYPASS
     Dosage: 81 MG, QD
     Route: 048
  4. ATACAND [Concomitant]
  5. HYDROCHLOROTHIAZIDE [Concomitant]
  6. FUROSEMIDE [Concomitant]
  7. GLEEVEC [Suspect]
     Indication: CHRONIC MYELOID LEUKAEMIA
     Dosage: 400 MG, QD
     Route: 048
     Dates: start: 20091201
  8. VITAMIN D [Concomitant]
     Indication: ROUTINE HEALTH MAINTENANCE
     Dosage: 1000 MG, QD
     Route: 048

REACTIONS (4)
  - FLUID RETENTION [None]
  - BLOOD CREATININE INCREASED [None]
  - RENAL IMPAIRMENT [None]
  - DIARRHOEA [None]
